FAERS Safety Report 20343790 (Version 1)
Quarter: 2022Q1

REPORT INFORMATION
  Report Type: Report from Study
  Country: CA (occurrence: CA)
  Receive Date: 20220118
  Receipt Date: 20220118
  Transmission Date: 20220423
  Serious: Yes (Other)
  Sender: FDA-Public Use
  Company Number: CA-ABBVIE-22K-028-4234975-00

PATIENT
  Sex: Female

DRUGS (2)
  1. HUMIRA [Suspect]
     Active Substance: ADALIMUMAB
     Indication: Psoriatic arthropathy
     Route: 058
     Dates: start: 20110125, end: 20211229
  2. HUMIRA [Suspect]
     Active Substance: ADALIMUMAB
     Indication: Psoriasis

REACTIONS (16)
  - Foot deformity [Unknown]
  - Orthosis user [Not Recovered/Not Resolved]
  - Fatigue [Unknown]
  - Dizziness [Unknown]
  - Gait disturbance [Not Recovered/Not Resolved]
  - Asthenia [Unknown]
  - Malaise [Unknown]
  - Decreased appetite [Unknown]
  - Migraine [Not Recovered/Not Resolved]
  - Cough [Unknown]
  - Contusion [Unknown]
  - Fall [Unknown]
  - Pain [Unknown]
  - Unevaluable event [Unknown]
  - Angina pectoris [Unknown]
  - Influenza [Unknown]

NARRATIVE: CASE EVENT DATE: 20210101
